FAERS Safety Report 4452769-8 (Version None)
Quarter: 2004Q3

REPORT INFORMATION
  Report Type: 
  Country: None (occurrence: None)
  Receive Date: 20040916
  Receipt Date: 20040909
  Transmission Date: 20050211
  Serious: No
  Sender: FDA-Public Use
  Company Number: 2004PK01522

PATIENT
  Age: 44 Year
  Sex: Female
  Weight: 65 kg

DRUGS (9)
  1. NEXIUM [Suspect]
     Indication: GASTRITIS
     Dosage: 40 MG DAILY PO
     Route: 048
     Dates: start: 20040303, end: 20040304
  2. DURAGESIC [Concomitant]
  3. TINCTURA OPII [Concomitant]
  4. KETALAR [Concomitant]
  5. MIDAZOLAM HCL [Concomitant]
  6. ROPIVACAIN [Concomitant]
  7. PRILOCAIN [Concomitant]
  8. CLONIDIN [Concomitant]
  9. EFFEXOR [Concomitant]

REACTIONS (2)
  - EXANTHEM [None]
  - PRURITUS [None]
